FAERS Safety Report 6575992-5 (Version None)
Quarter: 2010Q1

REPORT INFORMATION
  Report Type: 
  Country: None (occurrence: None)
  Receive Date: 20100209
  Receipt Date: 20100205
  Transmission Date: 20100710
  Serious: Yes (Hospitalization, Other)
  Sender: FDA-Public Use
  Company Number: GB-WYE-G00891908

PATIENT
  Age: 36 Year
  Sex: Female

DRUGS (7)
  1. ACETAMINOPHEN [Suspect]
     Dosage: OVERDOSE- POSSIBLY A HANDFUL
     Dates: start: 20011011
  2. CHLORDIAZEPOXIDE [Concomitant]
     Dosage: UNKNOWN
     Dates: start: 20001108
  3. SEROXAT [Suspect]
     Dosage: UNKNOWN
     Dates: start: 20001010
  4. SEROXAT [Suspect]
     Dosage: OVERDOSE OF 6-7 30MG TABLETS
     Dates: start: 20011011
  5. FLUOXETINE [Concomitant]
     Dosage: 40 MG, FREQUENCY UNKNOWN
  6. IBUPROFEN [Suspect]
     Dosage: OVERDOSE OF 7X 400MG
     Dates: start: 20011011
  7. ETHANOL [Suspect]
     Dosage: 10 UNITS
     Dates: start: 20011011

REACTIONS (2)
  - INTENTIONAL OVERDOSE [None]
  - SUICIDE ATTEMPT [None]
